FAERS Safety Report 17884706 (Version 1)
Quarter: 2020Q2

REPORT INFORMATION
  Report Type: Spontaneous
  Country: US (occurrence: US)
  Receive Date: 20200611
  Receipt Date: 20200611
  Transmission Date: 20200714
  Serious: Yes (Other)
  Sender: FDA-Public Use
  Company Number: None

PATIENT

DRUGS (2)
  1. TUCATINIB [Suspect]
     Active Substance: TUCATINIB
  2. TUKYSA [Concomitant]
     Active Substance: TUCATINIB

REACTIONS (1)
  - Product dispensing error [None]
